FAERS Safety Report 24382973 (Version 4)
Quarter: 2025Q2

REPORT INFORMATION
  Report Type: Other
  Country: US (occurrence: US)
  Receive Date: 20241001
  Receipt Date: 20250428
  Transmission Date: 20250716
  Serious: No
  Sender: TRAVERE THERAPEUTICS
  Company Number: US-TRAVERE-2024TVT00964

PATIENT
  Age: 60 Year
  Sex: Male

DRUGS (2)
  1. FILSPARI [Suspect]
     Active Substance: SPARSENTAN
     Indication: Chronic kidney disease
     Route: 048
  2. FILSPARI [Suspect]
     Active Substance: SPARSENTAN
     Indication: IgA nephropathy
     Route: 048
     Dates: start: 202502

REACTIONS (8)
  - Vomiting [None]
  - Diarrhoea [None]
  - Joint stiffness [None]
  - Weight increased [None]
  - Peripheral swelling [None]
  - Fluid retention [Unknown]
  - Pruritus [Recovered/Resolved]
  - Hypotension [Unknown]

NARRATIVE: CASE EVENT DATE: 20250203
